FAERS Safety Report 21535334 (Version 1)
Quarter: 2022Q4

REPORT INFORMATION
  Report Type: Spontaneous
  Country: US (occurrence: US)
  Receive Date: 20221101
  Receipt Date: 20221101
  Transmission Date: 20230113
  Serious: No
  Sender: FDA-Public Use
  Company Number: US-MIGRATION_PFIZER-2022BHV002082

PATIENT
  Age: 50 Year
  Sex: Female

DRUGS (2)
  1. NURTEC ODT [Suspect]
     Active Substance: RIMEGEPANT SULFATE
     Indication: Trigeminal neuralgia
     Dosage: 1 TABLET, NO MORE THAN 1 TABLET IN 24 HOURS, PATIENT WAS GIVEN QUANTITY OF 8 TABLETS FOR 30 DAYS WIT
     Route: 048
     Dates: start: 20220801
  2. NURTEC ODT [Suspect]
     Active Substance: RIMEGEPANT SULFATE
     Indication: Migraine

REACTIONS (1)
  - Off label use [Not Recovered/Not Resolved]
